FAERS Safety Report 4506361-7 (Version None)
Quarter: 2004Q4

REPORT INFORMATION
  Report Type: 
  Country: None (occurrence: None)
  Receive Date: 20041025
  Receipt Date: 20031106
  Transmission Date: 20050328
  Serious: Yes (Other)
  Sender: FDA-Public Use
  Company Number: US-JNJFOC-20031101417

PATIENT
  Age: 78 Year
  Sex: Female
  Weight: 69 kg

DRUGS (11)
  1. REMICADE [Suspect]
     Indication: RHEUMATOID ARTHRITIS
     Dosage: 3 VIALS
     Dates: start: 20031023
  2. METHOTREXATE SODIUM [Concomitant]
  3. LASIX [Concomitant]
  4. K-DUR 10 [Concomitant]
  5. VITAMINS (VITAMINS) [Concomitant]
  6. ZESTRIL [Concomitant]
  7. AMITRIPTYLINE (AMITRIPTYLINE) [Concomitant]
  8. ACETYLSALICYLIC ACID SRT [Concomitant]
  9. PLAQUENIL [Concomitant]
  10. PRAVACHOL [Concomitant]
  11. DIGITEC (DIGOXIN) [Concomitant]

REACTIONS (1)
  - PNEUMONIA [None]
